FAERS Safety Report 4948375-9 (Version None)
Quarter: 2006Q1

REPORT INFORMATION
  Report Type: 
  Country: None (occurrence: None)
  Receive Date: 20060201
  Receipt Date: 20051107
  Transmission Date: 20060701
  Serious: No
  Sender: FDA-Public Use
  Company Number: 2005PV004188

PATIENT
  Age: 40 Year
  Sex: Female
  Weight: 89.3586 kg

DRUGS (6)
  1. BYETTA [Suspect]
     Indication: DIABETES MELLITUS NON-INSULIN-DEPENDENT
     Dosage: SEE IMAGE
     Route: 058
     Dates: start: 20051006, end: 20051021
  2. BYETTA [Suspect]
     Indication: DIABETES MELLITUS NON-INSULIN-DEPENDENT
     Dosage: SEE IMAGE
     Route: 058
     Dates: start: 20051028
  3. GLUCOPHAGE [Concomitant]
  4. SEAONALE [Concomitant]
  5. LOVASTATIN [Concomitant]
  6. GLIPIZIDE [Concomitant]

REACTIONS (4)
  - DRUG INEFFECTIVE [None]
  - GLUCOSE URINE PRESENT [None]
  - HEADACHE [None]
  - VAGINAL INFECTION [None]
